FAERS Safety Report 8337770-6 (Version None)
Quarter: 2012Q2

REPORT INFORMATION
  Report Type: 
  Country: None (occurrence: None)
  Receive Date: 20120504
  Receipt Date: 20120426
  Transmission Date: 20120825
  Serious: Yes (Hospitalization)
  Sender: FDA-Public Use
  Company Number: US-GLAXOSMITHKLINE-A0930688A

PATIENT
  Age: 72 Year
  Sex: Male

DRUGS (2)
  1. AVANDAMET [Suspect]
     Indication: DIABETES MELLITUS
     Route: 048
     Dates: start: 20041101, end: 20050201
  2. AVANDIA [Suspect]
     Indication: DIABETES MELLITUS
     Dosage: 8MG PER DAY
     Route: 048
     Dates: start: 20031001, end: 20070401

REACTIONS (4)
  - CARDIAC FAILURE CONGESTIVE [None]
  - DEPRESSION [None]
  - BRADYCARDIA [None]
  - ATRIAL FIBRILLATION [None]
